FAERS Safety Report 8805328 (Version 2)
Quarter: 2012Q4

REPORT INFORMATION
  Report Type: 
  Country: DK (occurrence: DK)
  Receive Date: 20120924
  Receipt Date: 20120928
  Transmission Date: 20130627
  Serious: Yes (Hospitalization, Other)
  Sender: FDA-Public Use
  Company Number: DK-ROCHE-1127582

PATIENT
  Age: 78 Year
  Sex: Male

DRUGS (2)
  1. LUCENTIS [Suspect]
     Indication: AGE-RELATED MACULAR DEGENERATION
     Route: 050
     Dates: start: 20120716
  2. LUCENTIS [Suspect]
     Route: 050
     Dates: start: 20120730

REACTIONS (2)
  - Endophthalmitis [Unknown]
  - Inappropriate schedule of drug administration [Unknown]
